FAERS Safety Report 4530834-4 (Version None)
Quarter: 2004Q4

REPORT INFORMATION
  Report Type: 
  Country: None (occurrence: None)
  Receive Date: 20041215
  Receipt Date: 20021120
  Transmission Date: 20050328
  Serious: Yes (Hospitalization)
  Sender: FDA-Public Use
  Company Number: MEDI-0002495

PATIENT
  Age: 64 Year
  Sex: Male
  Weight: 58.9676 kg

DRUGS (10)
  1. ETHYOL [Suspect]
     Indication: RADIOTHERAPY
     Dosage: SEE IMAGE
     Route: 058
     Dates: start: 20020819, end: 20020913
  2. ETHYOL [Suspect]
     Indication: RADIOTHERAPY
     Dosage: SEE IMAGE
     Route: 058
     Dates: start: 20020916, end: 20021003
  3. RADIATION THERAPY [Concomitant]
  4. NYSTATIN [Concomitant]
  5. VISCOUS XYLOCAINE (LIDOCAINE HYDROCHLORIDE) [Concomitant]
  6. MAALOX (MAGNESIUM HYDROXIDE, ALUMINIUM HYDROXIDE GEL) [Concomitant]
  7. BENADRYL [Concomitant]
  8. HYDROCODONE (HYDROCODONE) [Concomitant]
  9. CARRASYN OINTMENT [Concomitant]
  10. BIAFINE OINTMENT (PROPOPYLENE GLYCOL, TROLAMINE, ETHYLENE GLYCOL MONOS [Concomitant]

REACTIONS (12)
  - ANOREXIA [None]
  - DEHYDRATION [None]
  - DYSPHAGIA [None]
  - HYPOTENSION [None]
  - MALNUTRITION [None]
  - NAUSEA [None]
  - PHARYNGOLARYNGEAL PAIN [None]
  - RADIATION SKIN INJURY [None]
  - REFUSAL OF TREATMENT BY PATIENT [None]
  - SKIN DESQUAMATION [None]
  - TREATMENT NONCOMPLIANCE [None]
  - VOMITING [None]
